FAERS Safety Report 9645326 (Version 4)
Quarter: 2015Q2

REPORT INFORMATION
  Report Type: Spontaneous
  Country: US (occurrence: US)
  Receive Date: 20131025
  Receipt Date: 20150630
  Transmission Date: 20150821
  Serious: Yes (Hospitalization, Other)
  Sender: FDA-Public Use
  Company Number: US-009507513-1203USA02324

PATIENT
  Sex: Female
  Weight: 72.56 kg

DRUGS (7)
  1. CALTRATE WITH VITAMIN D [Concomitant]
     Active Substance: CALCIUM CARBONATE\VITAMIN D
     Indication: OSTEOPOROSIS
     Dosage: 500-600 MG, TID
     Dates: start: 1997
  2. ALENDRONATE SODIUM. [Suspect]
     Active Substance: ALENDRONATE SODIUM
     Dosage: 70 MG, QW
     Route: 048
     Dates: start: 20100104, end: 20100907
  3. FOSAMAX [Suspect]
     Active Substance: ALENDRONATE SODIUM
     Dosage: 70 MG, QW
     Route: 048
     Dates: start: 20040209
  4. FOSAMAX [Suspect]
     Active Substance: ALENDRONATE SODIUM
     Indication: OSTEOPOROSIS
     Dosage: 10 MG, QD
     Route: 048
     Dates: start: 199701, end: 19980327
  5. ALENDRONATE SODIUM. [Suspect]
     Active Substance: ALENDRONATE SODIUM
     Indication: OSTEOPOROSIS
     Dosage: 70 MG, QW
     Route: 048
     Dates: start: 20090429
  6. BONIVA [Suspect]
     Active Substance: IBANDRONATE SODIUM
     Indication: OSTEOPOROSIS
     Dosage: 150 MG, UNK
     Route: 048
     Dates: start: 20050816, end: 20051122
  7. PREMARIN [Concomitant]
     Active Substance: ESTROGENS, CONJUGATED
     Indication: OSTEOPOROSIS
     Dosage: 0.625 MG, QD
     Dates: start: 1997

REACTIONS (46)
  - Musculoskeletal chest pain [Unknown]
  - Low turnover osteopathy [Unknown]
  - Arthritis [Unknown]
  - Muscle strain [Unknown]
  - Hypertension [Unknown]
  - Heart rate irregular [Unknown]
  - Femur fracture [Recovering/Resolving]
  - Hypothyroidism [Unknown]
  - Blood pressure increased [Unknown]
  - Contusion [Unknown]
  - Anaemia postoperative [Unknown]
  - Nocturia [Unknown]
  - Osteoarthritis [Unknown]
  - Osteoarthritis [Unknown]
  - Angiopathy [Unknown]
  - Fall [Unknown]
  - Abdominal hernia repair [Unknown]
  - Arteriosclerosis [Unknown]
  - Orbital oedema [Unknown]
  - Visual impairment [Unknown]
  - Femur fracture [Unknown]
  - Skeletal traction [Unknown]
  - Thyroidectomy [Unknown]
  - Dyslipidaemia [Unknown]
  - Micturition urgency [Unknown]
  - Urge incontinence [Unknown]
  - Bone density decreased [Not Recovered/Not Resolved]
  - Cardiomegaly [Unknown]
  - Extrasystoles [Unknown]
  - Femoral neck fracture [Unknown]
  - Fall [Unknown]
  - Cardiac murmur [Unknown]
  - Cystocele [Unknown]
  - Abdominal hernia [Unknown]
  - Dizziness postural [Unknown]
  - Cardiac disorder [Not Recovered/Not Resolved]
  - Periorbital contusion [Unknown]
  - Anaemia [Unknown]
  - Femur fracture [Recovered/Resolved]
  - Closed fracture manipulation [Unknown]
  - Closed fracture manipulation [Unknown]
  - Cystoscopy [Unknown]
  - Fall [Unknown]
  - Fall [Unknown]
  - Arthralgia [Unknown]
  - Muscle spasms [Unknown]

NARRATIVE: CASE EVENT DATE: 199703
